FAERS Safety Report 5525712-8 (Version None)
Quarter: 2007Q4

REPORT INFORMATION
  Report Type: 
  Country: None (occurrence: None)
  Receive Date: 20071126
  Receipt Date: 20071115
  Transmission Date: 20080405
  Serious: Yes (Other)
  Sender: FDA-Public Use
  Company Number: SE-ROCHE-531884

PATIENT
  Age: 40 Year
  Sex: Male

DRUGS (1)
  1. ROCEPHALIN [Suspect]
     Indication: DRUG USE FOR UNKNOWN INDICATION
     Dosage: DOSE FORM: POWDER FOR SOLUTION FOR INFUSION.
     Route: 065

REACTIONS (1)
  - PANCYTOPENIA [None]
